FAERS Safety Report 12475310 (Version 2)
Quarter: 2016Q3

REPORT INFORMATION
  Report Type: Report from Study
  Country: IT (occurrence: IT)
  Receive Date: 20160617
  Receipt Date: 20160907
  Transmission Date: 20161109
  Serious: Yes (Other)
  Sender: FDA-Public Use
  Company Number: IT-TEVA-667806ACC

PATIENT

DRUGS (4)
  1. TRAMADOL. [Suspect]
     Active Substance: TRAMADOL
     Indication: NERVE BLOCK
  2. CLONIDINE. [Suspect]
     Active Substance: CLONIDINE
     Indication: NERVE BLOCK
  3. SUFENTANIL [Suspect]
     Active Substance: SUFENTANIL
     Indication: NERVE BLOCK
  4. ROPIVACAINE [Suspect]
     Active Substance: ROPIVACAINE
     Indication: NERVE BLOCK

REACTIONS (4)
  - Bradycardia [Unknown]
  - Sedation [Unknown]
  - Hypotension [Unknown]
  - Pruritus [Unknown]
